FAERS Safety Report 16671987 (Version 1)
Quarter: 2019Q3

REPORT INFORMATION
  Report Type: Spontaneous
  Country: CA (occurrence: CA)
  Receive Date: 20190806
  Receipt Date: 20190806
  Transmission Date: 20191004
  Serious: Yes (Other)
  Sender: FDA-Public Use
  Company Number: CA-TEVA-2019-CA-1087320

PATIENT
  Sex: Female

DRUGS (6)
  1. HYDROMORPHONE HYDROCHLORIDE. [Interacting]
     Active Substance: HYDROMORPHONE HYDROCHLORIDE
     Indication: ABDOMINAL PAIN
     Route: 065
  2. MAGNESIUM SULFATE. [Interacting]
     Active Substance: MAGNESIUM SULFATE
     Indication: PRODUCT USED FOR UNKNOWN INDICATION
     Route: 048
  3. TRUVADA [Interacting]
     Active Substance: EMTRICITABINE\TENOFOVIR DISOPROXIL FUMARATE
     Indication: HIV INFECTION
     Route: 065
  4. DOLUTEGRAVIR [Interacting]
     Active Substance: DOLUTEGRAVIR
     Indication: HIV INFECTION
     Route: 065
  5. RIFAMPICIN [Interacting]
     Active Substance: RIFAMPIN
     Indication: TUBERCULOSIS
     Route: 065
  6. ABACAVIR SULFATE/LAMIVUDINE [Suspect]
     Active Substance: ABACAVIR SULFATE\LAMIVUDINE
     Indication: HIV INFECTION
     Route: 065

REACTIONS (4)
  - Drug interaction [Unknown]
  - Virologic failure [Unknown]
  - Pathogen resistance [Unknown]
  - Drug resistance [Unknown]
